FAERS Safety Report 4455072-5 (Version None)
Quarter: 2004Q3

REPORT INFORMATION
  Report Type: 
  Country: None (occurrence: None)
  Receive Date: 20040917
  Receipt Date: 20040831
  Transmission Date: 20050211
  Serious: Yes (Death, Life-Threatening, Hospitalization, Other)
  Sender: FDA-Public Use
  Company Number: US_030997445

PATIENT
  Age: 53 Year
  Sex: Male
  Weight: 86 kg

DRUGS (17)
  1. PEMETREXED [Suspect]
     Indication: MESOTHELIOMA
     Dosage: 500 MG/M2 OTHER
     Dates: start: 20030822
  2. GEMCITABINE HYDROCHLORIDE-IV (GEMCITABINE) [Suspect]
     Indication: MESOTHELIOMA
     Dosage: 1250 MG/M2 OTHER
     Dates: start: 20030815
  3. SUSTIVA [Concomitant]
  4. EPIVIR [Concomitant]
  5. ZERIT [Concomitant]
  6. CELEXA [Concomitant]
  7. CLARITIN-D [Concomitant]
  8. FOLIC ACID [Concomitant]
  9. TYLENOL [Concomitant]
  10. FAMOTIDINE [Concomitant]
  11. ZOFRAN [Concomitant]
  12. ANZEMET (DOLASETRON MESILATE) [Concomitant]
  13. BENADRYL [Concomitant]
  14. FISH OIL [Concomitant]
  15. VITAMIN E [Concomitant]
  16. VITAMIN C [Concomitant]
  17. VITAMIN B-12 [Concomitant]

REACTIONS (26)
  - ABDOMINAL DISTENSION [None]
  - ABDOMINAL PAIN [None]
  - ARRHYTHMIA SUPRAVENTRICULAR [None]
  - ASCITES [None]
  - ASTHENIA [None]
  - ATRIAL FIBRILLATION [None]
  - DEHYDRATION [None]
  - DIARRHOEA [None]
  - DRUG INEFFECTIVE [None]
  - DRUG INTERACTION [None]
  - DRUG TOXICITY [None]
  - EPISTAXIS [None]
  - HYPOTENSION [None]
  - INCISIONAL HERNIA [None]
  - INTERNATIONAL NORMALISED RATIO INCREASED [None]
  - MULTI-ORGAN FAILURE [None]
  - PANCYTOPENIA [None]
  - PLEURAL EFFUSION [None]
  - PROTHROMBIN TIME PROLONGED [None]
  - RASH [None]
  - RENAL FAILURE [None]
  - RENAL IMPAIRMENT [None]
  - SPUTUM CULTURE POSITIVE [None]
  - STAPHYLOCOCCAL INFECTION [None]
  - STOMATITIS [None]
  - TACHYCARDIA [None]
